FAERS Safety Report 23767216 (Version 1)
Quarter: 2024Q2

REPORT INFORMATION
  Report Type: Spontaneous
  Country: US (occurrence: US)
  Receive Date: 20240422
  Receipt Date: 20240422
  Transmission Date: 20240716
  Serious: No
  Sender: FDA-Public Use
  Company Number: US-DRL-USA-LIT/USA/24/0005894

PATIENT
  Age: 11 Year
  Sex: Female

DRUGS (4)
  1. SIROLIMUS [Suspect]
     Active Substance: SIROLIMUS
     Indication: Immunosuppressant drug therapy
  2. ABATACEPT [Concomitant]
     Active Substance: ABATACEPT
     Indication: Immunosuppressant drug therapy
     Route: 042
  3. DARATUMUMAB [Concomitant]
     Active Substance: DARATUMUMAB
     Indication: Immunosuppressant drug therapy
     Route: 042
  4. LISINOPRIL [Concomitant]
     Active Substance: LISINOPRIL
     Indication: Immunosuppressant drug therapy

REACTIONS (1)
  - Mouth ulceration [Recovered/Resolved]
